FAERS Safety Report 5145014-1 (Version None)
Quarter: 2006Q4

REPORT INFORMATION
  Report Type: 
  Country: None (occurrence: None)
  Receive Date: 20061107
  Receipt Date: 20050909
  Transmission Date: 20070319
  Serious: Yes (Other)
  Sender: FDA-Public Use
  Company Number: BR-GLAXOSMITHKLINE-A0574113A

PATIENT
  Age: 35 Year
  Sex: Female
  Weight: 70 kg

DRUGS (3)
  1. AEROLIN [Suspect]
     Indication: PREMATURE LABOUR
     Dosage: 1MG THREE TIMES PER DAY
     Route: 048
     Dates: start: 20050907
  2. VAGINAL CREAM(TREATMENT FOR CANDIDIASIS) [Suspect]
     Indication: CANDIDIASIS
     Route: 067
     Dates: start: 20050901
  3. DACTIL OB [Concomitant]
     Dates: start: 20050907

REACTIONS (5)
  - ABDOMINAL PAIN [None]
  - ABORTION SPONTANEOUS [None]
  - CONTRAINDICATION TO MEDICAL TREATMENT [None]
  - DRUG EXPOSURE DURING PREGNANCY [None]
  - MALAISE [None]
